FAERS Safety Report 11011145 (Version 2)
Quarter: 2015Q2

REPORT INFORMATION
  Report Type: Spontaneous
  Country: BR (occurrence: BR)
  Receive Date: 20150410
  Receipt Date: 20150508
  Transmission Date: 20150821
  Serious: Yes (Death, Hospitalization, Other)
  Sender: FDA-Public Use
  Company Number: BR-ASTRAZENECA-2015SE32907

PATIENT
  Age: 85 Year
  Sex: Female

DRUGS (1)
  1. SEROQUEL [Suspect]
     Active Substance: QUETIAPINE FUMARATE
     Indication: DEMENTIA ALZHEIMER^S TYPE
     Route: 048

REACTIONS (8)
  - Dementia Alzheimer^s type [Fatal]
  - Dysphagia [Not Recovered/Not Resolved]
  - Cardiac arrest [Fatal]
  - Multi-organ failure [Fatal]
  - Myocardial infarction [Unknown]
  - Pneumonia [Not Recovered/Not Resolved]
  - Sepsis [Fatal]
  - Off label use [Unknown]

NARRATIVE: CASE EVENT DATE: 2014
